FAERS Safety Report 10765034 (Version 4)
Quarter: 2016Q1

REPORT INFORMATION
  Report Type: Spontaneous
  Country: US (occurrence: US)
  Receive Date: 20150205
  Receipt Date: 20160224
  Transmission Date: 20160525
  Serious: Yes (Other)
  Sender: FDA-Public Use
  Company Number: US-PFIZER INC-2015048780

PATIENT
  Age: 62 Year
  Sex: Female

DRUGS (11)
  1. PROBIOTIC [Concomitant]
     Active Substance: PROBIOTICS NOS
     Indication: DYSPEPSIA
     Dosage: UNK, DAILY (13 BILLION TABLET DAILY)
     Dates: start: 2015
  2. PRISTIQ EXTENDED RELEASE [Suspect]
     Active Substance: DESVENLAFAXINE SUCCINATE
     Dosage: 50 MG, 1X/DAY
  3. PRISTIQ EXTENDED RELEASE [Suspect]
     Active Substance: DESVENLAFAXINE SUCCINATE
     Dosage: 50 MG, 1X/DAY
  4. LEVOTHYROXINE. [Concomitant]
     Active Substance: LEVOTHYROXINE
     Indication: THYROID DISORDER
     Dosage: 75 UG, 1X/DAY (75MCG TABLET ONCE DAILY EVERY MORNING)
     Dates: start: 2006
  5. PROBIOTIC [Concomitant]
     Active Substance: PROBIOTICS NOS
     Indication: IMMUNE SYSTEM DISORDER
  6. PRISTIQ EXTENDED RELEASE [Suspect]
     Active Substance: DESVENLAFAXINE SUCCINATE
     Dosage: 50 MG, 1X/DAY
  7. CALCIUM 600 PLUS VITAMIN D3 [Concomitant]
     Indication: OSTEOPOROSIS
     Dosage: 1200 MG, DAILY (600MG TABLET TWO DAILY)
  8. VITAMIN D3 [Concomitant]
     Active Substance: CHOLECALCIFEROL
     Indication: SUPPLEMENTATION THERAPY
     Dosage: 1000 IU, 1X/DAY
  9. BIOTIN [Concomitant]
     Active Substance: BIOTIN
     Indication: ONYCHOCLASIS
     Dosage: 5000 UG, DAILY
     Dates: start: 2015
  10. TURMERIC [Concomitant]
     Active Substance: TURMERIC
     Indication: ANTIOXIDANT THERAPY
     Dosage: 1000 MG, 1X/DAY
  11. TURMERIC [Concomitant]
     Active Substance: TURMERIC
     Indication: IMMUNE SYSTEM DISORDER

REACTIONS (15)
  - Malaise [Not Recovered/Not Resolved]
  - Nail disorder [Not Recovered/Not Resolved]
  - Fall [Unknown]
  - Hypertension [Not Recovered/Not Resolved]
  - Memory impairment [Not Recovered/Not Resolved]
  - Feeling abnormal [Unknown]
  - Gait disturbance [Unknown]
  - Tremor [Unknown]
  - Dizziness [Not Recovered/Not Resolved]
  - Pain [Not Recovered/Not Resolved]
  - Cervicobrachial syndrome [Not Recovered/Not Resolved]
  - Vertigo [Unknown]
  - Nasopharyngitis [Unknown]
  - Balance disorder [Not Recovered/Not Resolved]
  - Pancreatic neoplasm [Unknown]

NARRATIVE: CASE EVENT DATE: 2008
